FAERS Safety Report 6760717-0 (Version None)
Quarter: 2010Q2

REPORT INFORMATION
  Report Type: 
  Country: None (occurrence: None)
  Receive Date: 20100607
  Receipt Date: 20100607
  Transmission Date: 20101027
  Serious: Yes (Life-Threatening, Hospitalization, Disabling)
  Sender: FDA-Public Use
  Company Number: None

PATIENT
  Sex: Female
  Weight: 58.9676 kg

DRUGS (2)
  1. FOSAMAX [Suspect]
     Indication: OSTEOPENIA
     Dosage: 70 MG 1 TIME A WEEK PO
     Route: 048
     Dates: start: 20030201, end: 20050201
  2. BONIVA [Suspect]
     Indication: OSTEOPENIA
     Dosage: 150 MG MONTHLY PO
     Route: 048
     Dates: start: 20050201, end: 20100301

REACTIONS (6)
  - ARTHRALGIA [None]
  - BACK DISORDER [None]
  - FEMUR FRACTURE [None]
  - FOOT FRACTURE [None]
  - MUSCULAR WEAKNESS [None]
  - STRESS FRACTURE [None]
